FAERS Safety Report 4718337-5 (Version None)
Quarter: 2005Q3

REPORT INFORMATION
  Report Type: 
  Country: None (occurrence: None)
  Receive Date: 20050720
  Receipt Date: 20050613
  Transmission Date: 20060218
  Serious: Yes (Disabling, Other)
  Sender: FDA-Public Use
  Company Number: PHBS2005JP08611

PATIENT
  Age: 83 Year
  Sex: Female

DRUGS (10)
  1. DIOVAN [Suspect]
     Indication: HYPERTENSION
     Dosage: 80 MG/DAY
     Route: 048
     Dates: start: 20050127
  2. MAINTATE [Concomitant]
     Indication: HYPERTENSION
     Dosage: 2.5 MG/DAY
     Route: 048
     Dates: start: 20050127
  3. ASPIRIN [Concomitant]
     Dosage: 100 MG/DAY
     Route: 048
     Dates: start: 20050127
  4. PLETAL [Concomitant]
     Indication: HYPERTENSION
     Dosage: 100 MG/DAY
     Route: 048
     Dates: start: 20050127
  5. SIGMART [Concomitant]
     Indication: HYPERTENSION
     Dosage: 15 MG/DAY
     Route: 048
     Dates: start: 20050127
  6. MUCOSTA [Concomitant]
     Indication: GASTRITIS
     Route: 048
     Dates: start: 20050127
  7. LIPITOR [Concomitant]
     Indication: HYPERLIPIDAEMIA
     Dosage: 10 MG/DAY
     Route: 048
     Dates: start: 20050127
  8. ATELEC [Concomitant]
     Indication: HYPERTENSION
     Dosage: 20 MG/DAY
     Route: 048
     Dates: start: 20050127
  9. FRANDOL [Concomitant]
     Indication: MYOCARDIAL INFARCTION
     Dosage: 1 DF/DAY
     Route: 062
     Dates: start: 20050127
  10. GLYBURIDE [Concomitant]
     Indication: DIABETES MELLITUS
     Dosage: 1.5 MG/DAY
     Route: 048
     Dates: start: 20050127

REACTIONS (3)
  - CONDITION AGGRAVATED [None]
  - DYSPNOEA [None]
  - PULMONARY FIBROSIS [None]
